FAERS Safety Report 4742069-0 (Version None)
Quarter: 2005Q3

REPORT INFORMATION
  Report Type: 
  Country: None (occurrence: None)
  Receive Date: 20050810
  Receipt Date: 20050810
  Transmission Date: 20060218
  Serious: No
  Sender: FDA-Public Use
  Company Number: None

PATIENT
  Age: 82 Year
  Sex: Female
  Weight: 62.7 kg

DRUGS (13)
  1. VANCOMYCIN [Suspect]
  2. POTASSIUM CHLORIDE [Concomitant]
  3. A + D OINT, TOP [Concomitant]
  4. SENNOSIDES [Concomitant]
  5. MICONAZOLE NITRATE 2% POWDER [Concomitant]
  6. MOISTURIZING LOTION [Concomitant]
  7. LOVASTATIN [Concomitant]
  8. HYDROCHLOROTHIAZIDE [Concomitant]
  9. DILTIAZEM [Concomitant]
  10. CLOPIDOGREL BISULFATE [Concomitant]
  11. CALCIUM /VITAMIN D [Concomitant]
  12. MILK OF MAGNESIA TAB [Concomitant]
  13. ACETAMINOPHEN [Concomitant]

REACTIONS (1)
  - RASH GENERALISED [None]
